FAERS Safety Report 6313628-9 (Version None)
Quarter: 2009Q3

REPORT INFORMATION
  Report Type: 
  Country: None (occurrence: None)
  Receive Date: 20090814
  Receipt Date: 20090814
  Transmission Date: 20100115
  Serious: Yes (Other)
  Sender: FDA-Public Use
  Company Number: None

PATIENT
  Age: 28 Year
  Sex: Female

DRUGS (1)
  1. VARENICLINE 1MG PFIZER [Suspect]
     Indication: SMOKING CESSATION THERAPY
     Dosage: 1MG BID PO
     Route: 048
     Dates: start: 20090601, end: 20090701

REACTIONS (3)
  - EXAGGERATED STARTLE RESPONSE [None]
  - PALPITATIONS [None]
  - TREMOR [None]
